FAERS Safety Report 9314062 (Version 1)
Quarter: 2013Q2

REPORT INFORMATION
  Report Type: Report from Study
  Country: DE (occurrence: DE)
  Receive Date: 20130529
  Receipt Date: 20130529
  Transmission Date: 20140414
  Serious: Yes (Other)
  Sender: FDA-Public Use
  Company Number: DE-SANOFI-AVENTIS-2013SA052054

PATIENT
  Age: 69 Year
  Sex: Female
  Weight: 80 kg

DRUGS (2)
  1. ENOXAPARIN SODIUM [Suspect]
     Indication: ATRIAL FIBRILLATION
     Route: 058
     Dates: start: 20130409, end: 20130426
  2. MARCUMAR [Concomitant]
     Indication: ATRIAL FIBRILLATION
     Route: 048
     Dates: start: 201304

REACTIONS (2)
  - Fall [Recovered/Resolved]
  - Off label use [Unknown]
